FAERS Safety Report 16529384 (Version 1)
Quarter: 2019Q3

REPORT INFORMATION
  Report Type: Spontaneous
  Country: US (occurrence: US)
  Receive Date: 20190704
  Receipt Date: 20190704
  Transmission Date: 20191004
  Serious: No
  Sender: FDA-Public Use
  Company Number: US-GW PHARMA-201906USGW2168

PATIENT

DRUGS (2)
  1. EPIDIOLEX [Suspect]
     Active Substance: CANNABIDIOL
     Indication: EPILEPSY
     Dosage: 270 MILLIGRAM, BID
     Route: 048
     Dates: start: 20190503, end: 201905
  2. EPIDIOLEX [Suspect]
     Active Substance: CANNABIDIOL
     Dosage: 550 MILLIGRAM, BID
     Route: 048
     Dates: start: 201905

REACTIONS (3)
  - Paraesthesia oral [Not Recovered/Not Resolved]
  - Swollen tongue [Recovered/Resolved]
  - Abdominal pain upper [Not Recovered/Not Resolved]

NARRATIVE: CASE EVENT DATE: 2019
